FAERS Safety Report 23343615 (Version 2)
Quarter: 2024Q1

REPORT INFORMATION
  Report Type: Spontaneous
  Country: US (occurrence: US)
  Receive Date: 20231227
  Receipt Date: 20240110
  Transmission Date: 20240409
  Serious: No
  Sender: FDA-Public Use
  Company Number: US-PFIZER INC-202300453429

PATIENT
  Age: 17 Year
  Sex: Female

DRUGS (1)
  1. LITFULO [Suspect]
     Active Substance: RITLECITINIB TOSYLATE
     Indication: Alopecia areata
     Dosage: 1.0 APPLICATION, QD, 30 DAYS
     Route: 048

REACTIONS (2)
  - Pruritus [Unknown]
  - Therapeutic product effect incomplete [Unknown]
